FAERS Safety Report 6668265-3 (Version None)
Quarter: 2010Q2

REPORT INFORMATION
  Report Type: 
  Country: None (occurrence: None)
  Receive Date: 20100405
  Receipt Date: 20100405
  Transmission Date: 20101027
  Serious: Yes (Disabling)
  Sender: FDA-Public Use
  Company Number: None

PATIENT
  Sex: Female
  Weight: 72.7 kg

DRUGS (1)
  1. DOXIL [Suspect]
     Indication: BREAST CANCER METASTATIC
     Dosage: UNKNOWN EVERY 3 WEEKS INTRAVENOUS DRIP (041)
     Route: 041
     Dates: start: 20070911, end: 20071001

REACTIONS (10)
  - APHTHOUS STOMATITIS [None]
  - CANDIDIASIS [None]
  - NAUSEA [None]
  - OESOPHAGITIS [None]
  - PALMAR-PLANTAR ERYTHRODYSAESTHESIA SYNDROME [None]
  - PRODUCT LABEL CONFUSION [None]
  - PRODUCT QUALITY ISSUE [None]
  - RASH [None]
  - SKIN ULCER [None]
  - STOMATITIS [None]
